FAERS Safety Report 12751953 (Version 1)
Quarter: 2016Q3

REPORT INFORMATION
  Report Type: Spontaneous
  Country: US (occurrence: US)
  Receive Date: 20160916
  Receipt Date: 20160916
  Transmission Date: 20161109
  Serious: Yes (Other)
  Sender: FDA-Public Use
  Company Number: None

PATIENT
  Age: 51 Year
  Sex: Female
  Weight: 62.6 kg

DRUGS (6)
  1. FISH OIL [Concomitant]
     Active Substance: FISH OIL
  2. POTOMIX [Concomitant]
  3. VIIBRYD [Suspect]
     Active Substance: VILAZODONE HYDROCHLORIDE
     Indication: DEPRESSION
     Dosage: 40 MG PO 2016
     Route: 048
     Dates: start: 2016
  4. VALIUM [Concomitant]
     Active Substance: DIAZEPAM
  5. CINNAMON. [Concomitant]
     Active Substance: CINNAMON
  6. ASA [Concomitant]
     Active Substance: ASPIRIN

REACTIONS (2)
  - Hair texture abnormal [None]
  - Alopecia [None]

NARRATIVE: CASE EVENT DATE: 20160902
